FAERS Safety Report 6414985-5 (Version None)
Quarter: 2009Q4

REPORT INFORMATION
  Report Type: 
  Country: None (occurrence: None)
  Receive Date: 20091026
  Receipt Date: 20091019
  Transmission Date: 20100525
  Serious: No
  Sender: FDA-Public Use
  Company Number: US-ABBOTT-09P-163-0604097-00

PATIENT
  Sex: Female
  Weight: 59.02 kg

DRUGS (4)
  1. LUPRON DEPOT [Suspect]
     Indication: ENDOMETRIOSIS
     Dates: start: 20090730
  2. METHOTREXATE [Suspect]
     Indication: DERMATOMYOSITIS
  3. CELEBREX [Suspect]
     Indication: DERMATOMYOSITIS
  4. ZIAC [Suspect]
     Indication: DERMATOMYOSITIS

REACTIONS (1)
  - MENSTRUAL DISORDER [None]
